FAERS Safety Report 17373936 (Version 1)
Quarter: 2020Q1

REPORT INFORMATION
  Report Type: Spontaneous
  Country: US (occurrence: US)
  Receive Date: 20200206
  Receipt Date: 20200206
  Transmission Date: 20200409
  Serious: Yes (Other)
  Sender: FDA-Public Use
  Company Number: US-AMGEN-USASP2020017247

PATIENT
  Age: 41 Year
  Sex: Male

DRUGS (3)
  1. MELPHALAN. [Concomitant]
     Active Substance: MELPHALAN
     Indication: PLASMA CELL MYELOMA
  2. FILGRASTIM [Suspect]
     Active Substance: FILGRASTIM
     Indication: HAEMATOPOIETIC STEM CELL MOBILISATION
     Dosage: UNK
     Route: 065
  3. MELPHALAN. [Concomitant]
     Active Substance: MELPHALAN
     Indication: AMYLOIDOSIS
     Dosage: 200 MILLIGRAM/SQ. METER

REACTIONS (5)
  - Neuropathy peripheral [Recovered/Resolved]
  - Cholecystitis infective [Unknown]
  - Cholecystitis acute [Unknown]
  - Fatigue [Recovered/Resolved]
  - Nausea [Recovered/Resolved]
